FAERS Safety Report 25450228 (Version 1)
Quarter: 2025Q2

REPORT INFORMATION
  Report Type: Spontaneous
  Country: DE (occurrence: DE)
  Receive Date: 20250618
  Receipt Date: 20250618
  Transmission Date: 20250717
  Serious: Yes (Hospitalization, Other)
  Sender: MYLAN
  Company Number: DE-MYLANLABS-2025M1050782

PATIENT
  Age: 67 Year
  Sex: Female

DRUGS (44)
  1. MIRTAZAPINE [Suspect]
     Active Substance: MIRTAZAPINE
     Indication: Depression
     Dosage: 135 MILLIGRAM, QD
  2. MIRTAZAPINE [Suspect]
     Active Substance: MIRTAZAPINE
     Dosage: 135 MILLIGRAM, QD
  3. MIRTAZAPINE [Suspect]
     Active Substance: MIRTAZAPINE
     Dosage: 135 MILLIGRAM, QD
     Route: 065
  4. MIRTAZAPINE [Suspect]
     Active Substance: MIRTAZAPINE
     Dosage: 135 MILLIGRAM, QD
     Route: 065
  5. MIRTAZAPINE [Suspect]
     Active Substance: MIRTAZAPINE
     Dosage: 45 MILLIGRAM, QD (IN THE FIRST WEEKS OF INPATIENT TREATMENT)
  6. MIRTAZAPINE [Suspect]
     Active Substance: MIRTAZAPINE
     Dosage: 45 MILLIGRAM, QD (IN THE FIRST WEEKS OF INPATIENT TREATMENT)
  7. MIRTAZAPINE [Suspect]
     Active Substance: MIRTAZAPINE
     Dosage: 45 MILLIGRAM, QD (IN THE FIRST WEEKS OF INPATIENT TREATMENT)
     Route: 065
  8. MIRTAZAPINE [Suspect]
     Active Substance: MIRTAZAPINE
     Dosage: 45 MILLIGRAM, QD (IN THE FIRST WEEKS OF INPATIENT TREATMENT)
     Route: 065
  9. LORAZEPAM [Suspect]
     Active Substance: LORAZEPAM
     Indication: Depression
  10. LORAZEPAM [Suspect]
     Active Substance: LORAZEPAM
  11. LORAZEPAM [Suspect]
     Active Substance: LORAZEPAM
     Route: 065
  12. LORAZEPAM [Suspect]
     Active Substance: LORAZEPAM
     Route: 065
  13. LORAZEPAM [Suspect]
     Active Substance: LORAZEPAM
  14. LORAZEPAM [Suspect]
     Active Substance: LORAZEPAM
  15. LORAZEPAM [Suspect]
     Active Substance: LORAZEPAM
     Route: 065
  16. LORAZEPAM [Suspect]
     Active Substance: LORAZEPAM
     Route: 065
  17. LORAZEPAM [Suspect]
     Active Substance: LORAZEPAM
  18. LORAZEPAM [Suspect]
     Active Substance: LORAZEPAM
     Route: 065
  19. LORAZEPAM [Suspect]
     Active Substance: LORAZEPAM
  20. LORAZEPAM [Suspect]
     Active Substance: LORAZEPAM
     Route: 065
  21. NITROGLYCERIN [Suspect]
     Active Substance: NITROGLYCERIN
     Indication: Electroconvulsive therapy
  22. NITROGLYCERIN [Suspect]
     Active Substance: NITROGLYCERIN
     Route: 060
  23. NITROGLYCERIN [Suspect]
     Active Substance: NITROGLYCERIN
     Route: 060
  24. NITROGLYCERIN [Suspect]
     Active Substance: NITROGLYCERIN
  25. LEVOTHYROXINE [Concomitant]
     Active Substance: LEVOTHYROXINE
     Indication: Depression
     Dosage: 100 MICROGRAM, QD
  26. LEVOTHYROXINE [Concomitant]
     Active Substance: LEVOTHYROXINE
     Dosage: 100 MICROGRAM, QD
     Route: 065
  27. LEVOTHYROXINE [Concomitant]
     Active Substance: LEVOTHYROXINE
     Dosage: 100 MICROGRAM, QD
     Route: 065
  28. LEVOTHYROXINE [Concomitant]
     Active Substance: LEVOTHYROXINE
     Dosage: 100 MICROGRAM, QD
  29. PIPAMPERONE [Concomitant]
     Active Substance: PIPAMPERONE
     Indication: Depression
     Dosage: 80 MILLIGRAM, QD
  30. PIPAMPERONE [Concomitant]
     Active Substance: PIPAMPERONE
     Dosage: 80 MILLIGRAM, QD
     Route: 065
  31. PIPAMPERONE [Concomitant]
     Active Substance: PIPAMPERONE
     Dosage: 80 MILLIGRAM, QD
     Route: 065
  32. PIPAMPERONE [Concomitant]
     Active Substance: PIPAMPERONE
     Dosage: 80 MILLIGRAM, QD
  33. LITHIUM CARBONATE [Concomitant]
     Active Substance: LITHIUM CARBONATE
     Indication: Depression
     Dosage: 450 MILLIGRAM, QD
  34. LITHIUM CARBONATE [Concomitant]
     Active Substance: LITHIUM CARBONATE
     Dosage: 450 MILLIGRAM, QD
  35. LITHIUM CARBONATE [Concomitant]
     Active Substance: LITHIUM CARBONATE
     Dosage: 450 MILLIGRAM, QD
     Route: 065
  36. LITHIUM CARBONATE [Concomitant]
     Active Substance: LITHIUM CARBONATE
     Dosage: 450 MILLIGRAM, QD
     Route: 065
  37. LITHIUM CARBONATE [Concomitant]
     Active Substance: LITHIUM CARBONATE
  38. LITHIUM CARBONATE [Concomitant]
     Active Substance: LITHIUM CARBONATE
  39. LITHIUM CARBONATE [Concomitant]
     Active Substance: LITHIUM CARBONATE
     Route: 065
  40. LITHIUM CARBONATE [Concomitant]
     Active Substance: LITHIUM CARBONATE
     Route: 065
  41. RISPERIDONE [Concomitant]
     Active Substance: RISPERIDONE
     Indication: Depression
     Dosage: 0.5 MILLIGRAM, QD
  42. RISPERIDONE [Concomitant]
     Active Substance: RISPERIDONE
     Dosage: 0.5 MILLIGRAM, QD
     Route: 065
  43. RISPERIDONE [Concomitant]
     Active Substance: RISPERIDONE
     Dosage: 0.5 MILLIGRAM, QD
     Route: 065
  44. RISPERIDONE [Concomitant]
     Active Substance: RISPERIDONE
     Dosage: 0.5 MILLIGRAM, QD

REACTIONS (3)
  - Hypotension [Unknown]
  - Drug dependence [Unknown]
  - Off label use [Unknown]
